FAERS Safety Report 6047937-8 (Version None)
Quarter: 2009Q1

REPORT INFORMATION
  Report Type: 
  Country: None (occurrence: None)
  Receive Date: 20090123
  Receipt Date: 20090112
  Transmission Date: 20090719
  Serious: Yes (Other)
  Sender: FDA-Public Use
  Company Number: AU-RB-008188-09

PATIENT
  Age: 30 Year
  Sex: Male

DRUGS (8)
  1. BUPRENORPHINE HCL [Suspect]
     Route: 060
     Dates: start: 19971010, end: 19971013
  2. BUPRENORPHINE HCL [Suspect]
     Route: 060
     Dates: start: 19971014, end: 19971016
  3. BUPRENORPHINE HCL [Suspect]
     Route: 060
     Dates: start: 19971017, end: 19971018
  4. OPIATE AND OPIOID ANALGESIC [Concomitant]
     Indication: DRUG USE FOR UNKNOWN INDICATION
  5. HEROIN [Concomitant]
     Indication: DRUG USE FOR UNKNOWN INDICATION
  6. ALCOHOL [Concomitant]
     Indication: DRUG USE FOR UNKNOWN INDICATION
  7. BENZODIAZEPINE [Concomitant]
     Indication: DRUG USE FOR UNKNOWN INDICATION
  8. CANNABIS [Concomitant]
     Indication: DRUG USE FOR UNKNOWN INDICATION

REACTIONS (1)
  - HOSTILITY [None]
